FAERS Safety Report 10223545 (Version 1)
Quarter: 2014Q2

REPORT INFORMATION
  Report Type: Spontaneous
  Country: US (occurrence: None)
  Receive Date: 20140605
  Receipt Date: 20140605
  Transmission Date: 20141212
  Serious: Yes (Life-Threatening)
  Sender: FDA-Public Use
  Company Number: 2014CT000047

PATIENT
  Age: 45 Year
  Sex: Female

DRUGS (2)
  1. KORLYM [Suspect]
     Indication: PRODUCT USED FOR UNKNOWN INDICATION
  2. TESTOSTERONE [Concomitant]

REACTIONS (5)
  - Apparent life threatening event [None]
  - Fatigue [None]
  - Vomiting [None]
  - Libido decreased [None]
  - Hypotension [None]
